FAERS Safety Report 14284707 (Version 1)
Quarter: 2017Q4

REPORT INFORMATION
  Report Type: Spontaneous
  Country: CO (occurrence: CO)
  Receive Date: 20171214
  Receipt Date: 20171214
  Transmission Date: 20180321
  Serious: Yes (Hospitalization)
  Sender: FDA-Public Use
  Company Number: CO-CELLTRION INC.-2017CO015720

PATIENT

DRUGS (11)
  1. ENSURE [Concomitant]
     Active Substance: AMINO ACIDS\DEXTROSE\ELECTROLYTES NOS\SOYBEAN OIL\VITAMINS
     Dosage: 2 LATAS, DAILY
     Route: 048
     Dates: start: 2017
  2. REMSIMA [Suspect]
     Active Substance: INFLIXIMAB
     Dosage: 300 MG, UNK
     Route: 042
  3. REMSIMA [Suspect]
     Active Substance: INFLIXIMAB
     Dosage: 300 MG, UNK
     Route: 042
     Dates: start: 20170920, end: 20170920
  4. REMSIMA [Suspect]
     Active Substance: INFLIXIMAB
     Indication: COLITIS ULCERATIVE
     Dosage: 300 MG, UNK
     Route: 042
     Dates: start: 20161213, end: 20161213
  5. REMSIMA [Suspect]
     Active Substance: INFLIXIMAB
     Dosage: 300 MG, UNK
     Route: 042
  6. REMSIMA [Suspect]
     Active Substance: INFLIXIMAB
     Dosage: 300 MG, UNK
     Route: 042
  7. AZATIOPRINA                        /00001501/ [Concomitant]
     Active Substance: AZATHIOPRINE
     Dosage: 50 MG, DAILY
     Route: 048
     Dates: start: 2001
  8. REMSIMA [Suspect]
     Active Substance: INFLIXIMAB
     Dosage: 300 MG, UNK
     Route: 042
  9. ANEMIDOX                           /01478701/ [Concomitant]
     Dosage: UNK, DAILY
     Route: 048
     Dates: start: 2002
  10. SALOFALK GR [Concomitant]
     Dosage: 1.5 MG, Q8HR
     Route: 048
     Dates: start: 2014
  11. CALCIO                             /00183801/ [Concomitant]
     Dosage: 600 MG, 12 HOURS
     Route: 048
     Dates: start: 2017

REACTIONS (7)
  - Oedema peripheral [Recovered/Resolved]
  - Haemorrhage [Recovering/Resolving]
  - Incorrect dose administered [Unknown]
  - Haematoma [Recovered/Resolved]
  - Rectal discharge [Recovering/Resolving]
  - Pain [Recovered/Resolved]
  - Exposure during pregnancy [Unknown]

NARRATIVE: CASE EVENT DATE: 20170829
